FAERS Safety Report 4770891-3 (Version None)
Quarter: 2005Q3

REPORT INFORMATION
  Report Type: 
  Country: None (occurrence: None)
  Receive Date: 20050915
  Receipt Date: 20050804
  Transmission Date: 20060218
  Serious: Yes (Hospitalization)
  Sender: FDA-Public Use
  Company Number: DE-ROCHE-412954

PATIENT
  Age: 58 Year
  Sex: Male
  Weight: 93 kg

DRUGS (4)
  1. PEG-INTERFERON ALFA 2A (RO 25-8310) [Suspect]
     Route: 058
     Dates: start: 20040426
  2. RIBAVIRIN [Suspect]
     Route: 048
     Dates: start: 20040426
  3. ANTIDIABETIC DRUG NOS [Concomitant]
     Indication: DIABETES MELLITUS
     Route: 048
     Dates: end: 20050115
  4. ANTIHYPERTENSIVE DRUG NOS [Concomitant]

REACTIONS (6)
  - DEHYDRATION [None]
  - DIABETES MELLITUS INADEQUATE CONTROL [None]
  - ERYSIPELAS [None]
  - INJECTION SITE THROMBOSIS [None]
  - PANCYTOPENIA [None]
  - SOMNOLENCE [None]
